FAERS Safety Report 7336462-X (Version None)
Quarter: 2011Q1

REPORT INFORMATION
  Report Type: 
  Country: None (occurrence: None)
  Receive Date: 20110307
  Receipt Date: 20110228
  Transmission Date: 20110831
  Serious: Yes (Other)
  Sender: FDA-Public Use
  Company Number: US-US-EMD SERONO, INC.-7045290

PATIENT
  Sex: Female

DRUGS (2)
  1. SAIZEN [Suspect]
     Indication: HYPOPITUITARISM
     Dates: start: 20101101, end: 20110201
  2. SYNTHROID [Concomitant]

REACTIONS (5)
  - LOSS OF CONSCIOUSNESS [None]
  - HEART RATE INCREASED [None]
  - ABDOMINAL DISCOMFORT [None]
  - DIARRHOEA [None]
  - ANXIETY [None]
